FAERS Safety Report 23826735 (Version 1)
Quarter: 2024Q2

REPORT INFORMATION
  Report Type: Spontaneous
  Country: US (occurrence: US)
  Receive Date: 20240507
  Receipt Date: 20240507
  Transmission Date: 20240716
  Serious: Yes (Other)
  Sender: FDA-Public Use
  Company Number: US-FreseniusKabi-FK202407091

PATIENT

DRUGS (2)
  1. MORPHINE [Suspect]
     Active Substance: MORPHINE
     Indication: Chest pain
     Dosage: ROUTE: IV PUSH OVER 5 SECONDS VIA SALINE LOCK
  2. MORPHINE [Suspect]
     Active Substance: MORPHINE
     Indication: Abdominal pain upper

REACTIONS (2)
  - Circulatory collapse [Recovered/Resolved]
  - Incorrect drug administration rate [Unknown]
